FAERS Safety Report 5942681-7 (Version None)
Quarter: 2008Q4

REPORT INFORMATION
  Report Type: 
  Country: None (occurrence: None)
  Receive Date: 20081106
  Receipt Date: 20081030
  Transmission Date: 20090506
  Serious: Yes (Other)
  Sender: FDA-Public Use
  Company Number: GB-RANBAXY-2008RR-16288

PATIENT
  Age: 69 Year
  Sex: Female
  Weight: 55 kg

DRUGS (9)
  1. AMOXICILLIN [Suspect]
     Indication: CHRONIC OBSTRUCTIVE PULMONARY DISEASE
     Dosage: 500 MG, TID
     Route: 048
     Dates: start: 20080610, end: 20080615
  2. ASPIRIN [Concomitant]
     Dosage: 75 MG, QD
     Route: 048
     Dates: start: 20080219
  3. DILTIAZEM HYDROCHLORIDE [Concomitant]
     Dosage: 180 MG, QD
     Route: 048
     Dates: start: 20011120
  4. NITROGLYCERIN [Concomitant]
     Dosage: 2 DF, PRN
     Dates: start: 20011113
  5. LEVOTHYROXINE SODIUM [Concomitant]
     Dosage: 100 UG, QD
     Route: 048
     Dates: start: 20010126
  6. ALBUTEROL SULFATE [Concomitant]
     Dosage: 2 DF, PRN
     Route: 055
     Dates: start: 20020701
  7. SERETIDE [Concomitant]
     Dosage: 2 DF, BID
     Route: 055
     Dates: start: 20050830
  8. SIMVASTATIN [Concomitant]
     Dosage: 20 MG, QD
     Route: 048
     Dates: start: 20011120
  9. TIOTROPIUM BROMIDE [Concomitant]
     Dosage: 18 UG, QD
     Route: 055
     Dates: start: 20040723

REACTIONS (2)
  - HYPONATRAEMIA [None]
  - MYALGIA [None]
